FAERS Safety Report 4807227-5 (Version None)
Quarter: 2005Q4

REPORT INFORMATION
  Report Type: 
  Country: None (occurrence: None)
  Receive Date: 20051020
  Receipt Date: 20051020
  Transmission Date: 20060501
  Serious: Yes (Hospitalization)
  Sender: FDA-Public Use
  Company Number: None

PATIENT
  Age: 58 Year
  Sex: Male
  Weight: 77.1 kg

DRUGS (17)
  1. CIPROFLOXACIN IN DEXTROSE 5% [Suspect]
  2. EMTRICITABINE/TENOFOVIR [Concomitant]
  3. LOPINAVIR/RITONAVIR [Concomitant]
  4. HYDROXYZINE [Concomitant]
  5. AZITHROMYCIN [Concomitant]
  6. SALSALATE [Concomitant]
  7. DESONIDE 0.5% CREAM [Concomitant]
  8. AMITRIPTYLINE HCL [Concomitant]
  9. ACETAMINOPHEN [Concomitant]
  10. TERAZOSIN HCL [Concomitant]
  11. SODIUM CHL [Concomitant]
  12. DAPSONE [Concomitant]
  13. SERTRALINE [Concomitant]
  14. MULTIVITAMINS/ZINC (CENTRUM) [Concomitant]
  15. ALOH/MGOH/SIMTH [Concomitant]
  16. CILASTATIN/IMIPENEM [Concomitant]
  17. GENTAMICIN [Concomitant]

REACTIONS (1)
  - PRURITUS [None]
